FAERS Safety Report 6020107-5 (Version None)
Quarter: 2008Q4

REPORT INFORMATION
  Report Type: 
  Country: None (occurrence: None)
  Receive Date: 20081221
  Receipt Date: 20081221
  Transmission Date: 20090506
  Serious: No
  Sender: FDA-Public Use
  Company Number: None

PATIENT
  Sex: Female

DRUGS (1)
  1. ADVAIR DISKUS 100/50 [Suspect]
     Indication: RESPIRATORY DISORDER
     Dosage: 100/50 BID/QD INHAL
     Route: 055
     Dates: start: 20080801, end: 20081101

REACTIONS (6)
  - ABDOMINAL DISTENSION [None]
  - BONE PAIN [None]
  - GAIT DISTURBANCE [None]
  - RASH GENERALISED [None]
  - SOMNOLENCE [None]
  - WEIGHT INCREASED [None]
